FAERS Safety Report 18155880 (Version 1)
Quarter: 2020Q3

REPORT INFORMATION
  Report Type: Spontaneous
  Country: US (occurrence: US)
  Receive Date: 20200814
  Receipt Date: 20200814
  Transmission Date: 20201103
  Serious: Yes (Hospitalization)
  Sender: FDA-Public Use
  Company Number: None

PATIENT
  Sex: Female

DRUGS (1)
  1. TREPROSTINIL MDV 5MG/ML TEVA PARENTERAL MEDICINES [Suspect]
     Active Substance: TREPROSTINIL
     Indication: PULMONARY ARTERIAL HYPERTENSION
     Dosage: ?          OTHER FREQUENCY:CONTINUOUSLY;?
     Route: 042
     Dates: start: 202004

REACTIONS (5)
  - Product administration error [None]
  - Wrong dose [None]
  - Complication associated with device [None]
  - Incorrect dose administered by device [None]
  - Loss of consciousness [None]
